FAERS Safety Report 14795195 (Version 2)
Quarter: 2019Q1

REPORT INFORMATION
  Report Type: Report from Study
  Country: DE (occurrence: DE)
  Receive Date: 20180423
  Receipt Date: 20190225
  Transmission Date: 20190417
  Serious: Yes (Hospitalization)
  Sender: FDA-Public Use
  Company Number: DE-ROCHE-2112651

PATIENT
  Age: 66 Year
  Sex: Female

DRUGS (14)
  1. LEVOTHYROXIN [Concomitant]
     Active Substance: LEVOTHYROXINE
  2. ELIQUIS [Concomitant]
     Active Substance: APIXABAN
  3. ALENDRONIC ACID [Concomitant]
     Active Substance: ALENDRONIC ACID
  4. PANTOPRAZOL [Concomitant]
     Active Substance: PANTOPRAZOLE SODIUM
  5. TORASEMID [Concomitant]
     Active Substance: TORSEMIDE
  6. DEKRISTOL [Concomitant]
     Active Substance: CHOLECALCIFEROL
  7. FOLIC ACID. [Concomitant]
     Active Substance: FOLIC ACID
  8. VALSARTAN. [Concomitant]
     Active Substance: VALSARTAN
  9. METOPROLOL. [Concomitant]
     Active Substance: METOPROLOL
  10. METHOTREXAT [Suspect]
     Active Substance: METHOTREXATE
     Indication: RHEUMATOID ARTHRITIS
     Route: 065
  11. TOCILIZUMAB. [Suspect]
     Active Substance: TOCILIZUMAB
     Indication: RHEUMATOID ARTHRITIS
     Route: 042
     Dates: end: 20171211
  12. OLUMIANT [Concomitant]
     Active Substance: BARICITINIB
     Route: 065
     Dates: start: 20180118
  13. PREDNISOLON [Concomitant]
     Active Substance: PREDNISOLONE
  14. RADIOIODINE [Concomitant]
     Active Substance: IODINE I-131
     Indication: HYPERTHYROIDISM

REACTIONS (3)
  - Diverticulum intestinal haemorrhagic [Recovered/Resolved]
  - Diverticulum [Unknown]
  - Gastritis [Unknown]

NARRATIVE: CASE EVENT DATE: 20171126
